FAERS Safety Report 13919493 (Version 1)
Quarter: 2017Q3

REPORT INFORMATION
  Report Type: Spontaneous
  Country: HR (occurrence: HR)
  Receive Date: 20170830
  Receipt Date: 20170830
  Transmission Date: 20171127
  Serious: Yes (Hospitalization)
  Sender: FDA-Public Use
  Company Number: HR-BAYER-2017-162049

PATIENT
  Age: 3 Year
  Sex: Male

DRUGS (2)
  1. CLARITINE 0.1 % [Suspect]
     Active Substance: LORATADINE
     Indication: HYPERSENSITIVITY
     Dosage: 5 ML, QD
     Route: 048
     Dates: start: 20170604, end: 20170604
  2. CLARITINE 0.1 % [Suspect]
     Active Substance: LORATADINE
     Indication: EYELID OEDEMA

REACTIONS (2)
  - Febrile convulsion [Recovered/Resolved]
  - Seizure [Recovered/Resolved]

NARRATIVE: CASE EVENT DATE: 20170604
